FAERS Safety Report 22991386 (Version 5)
Quarter: 2024Q1

REPORT INFORMATION
  Report Type: Report from Study
  Country: US (occurrence: US)
  Receive Date: 20230927
  Receipt Date: 20240320
  Transmission Date: 20240409
  Serious: Yes (Other)
  Sender: FDA-Public Use
  Company Number: US-UCBSA-2023028436

PATIENT
  Sex: Male

DRUGS (3)
  1. LACOSAMIDE [Suspect]
     Active Substance: LACOSAMIDE
     Indication: Seizure
     Dosage: 200 MILLIGRAM, 2X/DAY (BID)
  2. BRIVIACT [Suspect]
     Active Substance: BRIVARACETAM
     Indication: Seizure
     Dosage: 100 MILLIGRAM
  3. BRIVIACT [Suspect]
     Active Substance: BRIVARACETAM
     Dosage: 50MG + 100MG- 1 TAB EACH 2X/DAY (BID)

REACTIONS (7)
  - Seizure [Unknown]
  - Aura [Unknown]
  - Stress [Not Recovered/Not Resolved]
  - Communication disorder [Unknown]
  - General physical health deterioration [Unknown]
  - Complication associated with device [Not Recovered/Not Resolved]
  - Life expectancy shortened [Unknown]

NARRATIVE: CASE EVENT DATE: 20230101
